FAERS Safety Report 16270612 (Version 1)
Quarter: 2019Q2

REPORT INFORMATION
  Report Type: Spontaneous
  Country: US (occurrence: US)
  Receive Date: 20190330
  Receipt Date: 20190330
  Transmission Date: 20190711
  Serious: No
  Sender: FDA-Public Use
  Company Number: None

PATIENT
  Age: 72 Year
  Sex: Female

DRUGS (1)
  1. DUPIXENT [Suspect]
     Active Substance: DUPILUMAB
     Indication: ASTHMA
     Dates: start: 201812

REACTIONS (4)
  - Inappropriate schedule of product administration [None]
  - Pruritus [None]
  - Lacrimation increased [None]
  - Decreased appetite [None]

NARRATIVE: CASE EVENT DATE: 20190330
